FAERS Safety Report 21659343 (Version 6)
Quarter: 2023Q4

REPORT INFORMATION
  Report Type: Report from Study
  Country: CO (occurrence: CO)
  Receive Date: 20221129
  Receipt Date: 20231221
  Transmission Date: 20240110
  Serious: Yes (Hospitalization)
  Sender: FDA-Public Use
  Company Number: CO-BIOGEN-2022BI01160222

PATIENT
  Age: 7 Year
  Sex: Female
  Weight: 25 kg

DRUGS (7)
  1. SPINRAZA [Suspect]
     Active Substance: NUSINERSEN
     Indication: Spinal muscular atrophy
     Route: 050
     Dates: start: 20220430, end: 20220603
  2. SPINRAZA [Suspect]
     Active Substance: NUSINERSEN
     Route: 050
  3. SPINRAZA [Suspect]
     Active Substance: NUSINERSEN
     Route: 050
     Dates: start: 20220430, end: 20221104
  4. VITAMIN D NOS [Concomitant]
     Active Substance: VITAMIN D NOS
     Indication: Product used for unknown indication
     Route: 050
  5. ZINC OXIDE [Concomitant]
     Active Substance: ZINC OXIDE
     Indication: Gastrointestinal disorder
     Dosage: 1 SYRINGE
     Route: 050
  6. EVALAX [Concomitant]
     Indication: Constipation
     Dosage: 1 TABLESPOON
     Route: 050
  7. ENEMA TRAVAD [Concomitant]
     Indication: Constipation
     Route: 050
     Dates: start: 20230621, end: 20230621

REACTIONS (9)
  - Bronchial disorder [Not Recovered/Not Resolved]
  - Viral infection [Unknown]
  - Pneumonia [Not Recovered/Not Resolved]
  - Cough [Not Recovered/Not Resolved]
  - Abdominal pain [Recovered/Resolved]
  - Flatulence [Recovered/Resolved]
  - Eructation [Recovered/Resolved]
  - Influenza [Not Recovered/Not Resolved]
  - Constipation [Recovered/Resolved]

NARRATIVE: CASE EVENT DATE: 20221003
